FAERS Safety Report 4632697-5 (Version None)
Quarter: 2005Q2

REPORT INFORMATION
  Report Type: 
  Country: None (occurrence: None)
  Receive Date: 20050412
  Receipt Date: 20050331
  Transmission Date: 20051028
  Serious: Yes (Death)
  Sender: FDA-Public Use
  Company Number: US-JNJFOC-20050400785

PATIENT
  Sex: Male
  Weight: 71.67 kg

DRUGS (8)
  1. INFLIXIMAB [Suspect]
     Route: 042
  2. INFLIXIMAB [Suspect]
     Route: 042
  3. INFLIXIMAB [Suspect]
     Route: 042
  4. INFLIXIMAB [Suspect]
     Route: 042
  5. INFLIXIMAB [Suspect]
     Route: 042
  6. INFLIXIMAB [Suspect]
     Dosage: LAST INFUSION GIVEN PRIOR TO REGISTERING IN TREAT
     Route: 042
  7. INFLIXIMAB [Suspect]
     Indication: CROHN'S DISEASE
     Dosage: PRIOR TO TREAT REGISTRATION
     Route: 042
  8. ANTEGREN [Suspect]

REACTIONS (2)
  - HEPATIC ENCEPHALOPATHY [None]
  - MULTI-ORGAN FAILURE [None]
